FAERS Safety Report 22303832 (Version 1)
Quarter: 2023Q2

REPORT INFORMATION
  Report Type: Spontaneous
  Country: GB (occurrence: GB)
  Receive Date: 20230510
  Receipt Date: 20230510
  Transmission Date: 20230721
  Serious: Yes (Other)
  Sender: FDA-Public Use
  Company Number: GB-SUN PHARMACEUTICAL INDUSTRIES LTD-2023RR-387836

PATIENT
  Sex: Male

DRUGS (1)
  1. TAMSULOSIN [Suspect]
     Active Substance: TAMSULOSIN
     Indication: Prostate cancer
     Dosage: 1 DOSAGE FORM, DAILY (FRIDAY AND SATURDAY)
     Route: 065

REACTIONS (3)
  - Loss of consciousness [Unknown]
  - Amnesia [Unknown]
  - Product label issue [Unknown]
